FAERS Safety Report 17578493 (Version 2)
Quarter: 2020Q2

REPORT INFORMATION
  Report Type: Spontaneous
  Country: SE (occurrence: SE)
  Receive Date: 20200324
  Receipt Date: 20200402
  Transmission Date: 20200713
  Serious: Yes (Life-Threatening, Hospitalization)
  Sender: FDA-Public Use
  Company Number: SE-ELI_LILLY_AND_COMPANY-SE202003009271

PATIENT
  Age: 68 Year
  Sex: Male

DRUGS (11)
  1. GLUCOSE [Concomitant]
     Active Substance: DEXTROSE
     Indication: PROPHYLAXIS
     Dosage: UNK, UNKNOWN
     Route: 042
  2. GLUCOSE [Concomitant]
     Active Substance: DEXTROSE
     Indication: DIABETES MELLITUS MANAGEMENT
  3. GLUCAGON. [Suspect]
     Active Substance: GLUCAGON
     Indication: CARDIAC DYSFUNCTION
     Dosage: UNK UNK, UNKNOWN
     Route: 065
  4. INSULIN [Suspect]
     Active Substance: INSULIN NOS
     Dosage: 5 U/KG/H, UNKNOWN
     Route: 050
  5. INSULIN [Suspect]
     Active Substance: INSULIN NOS
     Dosage: 1 U/KG/H, UNKNOWN
     Route: 050
  6. EPINEPHRINE. [Concomitant]
     Active Substance: EPINEPHRINE
     Indication: CARDIAC DYSFUNCTION
     Dosage: UNK, UNKNOWN
     Route: 065
  7. NOREPINEPHRINE. [Concomitant]
     Active Substance: NOREPINEPHRINE
     Indication: CARDIAC DYSFUNCTION
     Dosage: UNK, UNKNOWN
     Route: 065
  8. INSULIN GLARGINE [Suspect]
     Active Substance: INSULIN GLARGINE
     Indication: CARDIAC DYSFUNCTION
     Dosage: UNK UNK, UNKNOWN
     Route: 042
  9. INSULIN [Suspect]
     Active Substance: INSULIN NOS
     Indication: CARDIAC DYSFUNCTION
     Dosage: 1 U/KG, UNKNOWN
     Route: 050
  10. VASOPRESSIN. [Concomitant]
     Active Substance: VASOPRESSIN
     Indication: CARDIAC DYSFUNCTION
     Dosage: UNK, UNKNOWN
     Route: 065
  11. AMLODIPINE [Suspect]
     Active Substance: AMLODIPINE BESYLATE
     Indication: INTENTIONAL OVERDOSE
     Dosage: 1 G, UNKNOWN
     Route: 048

REACTIONS (4)
  - Incorrect route of product administration [Unknown]
  - Non-cardiogenic pulmonary oedema [Recovered/Resolved]
  - Off label use [Unknown]
  - Condition aggravated [Recovered/Resolved]
